FAERS Safety Report 7799981-8 (Version None)
Quarter: 2011Q4

REPORT INFORMATION
  Report Type: 
  Country: None (occurrence: None)
  Receive Date: 20111006
  Receipt Date: 20110929
  Transmission Date: 20120403
  Serious: Yes (Hospitalization)
  Sender: FDA-Public Use
  Company Number: CA-ROCHE-751161

PATIENT
  Sex: Female
  Weight: 65.5 kg

DRUGS (10)
  1. TEMOZOLOMIDE [Suspect]
     Indication: GLIOBLASTOMA
     Dosage: TEMPORARILY INTERRUPTED. LAST DOSE PRIOR TO SAE: 23 DECEMBER 2010.
     Route: 048
     Dates: start: 20101117, end: 20101224
  2. RANITIDINE [Concomitant]
  3. TEMOZOLOMIDE [Suspect]
     Dosage: RESTARTED
     Route: 048
  4. LEVOTHYROXINE SODIUM [Concomitant]
  5. PROCHLORPERAZINE [Concomitant]
  6. AVASTIN [Suspect]
     Dosage: RESTARTED
     Route: 042
  7. TYLENOL COLD PRODUCT NOS [Concomitant]
     Dosage: TOTAL DAILY DOSE: 1-3 TABS
  8. AVASTIN [Suspect]
     Indication: GLIOBLASTOMA
     Dosage: LAST DOSE PRIOR TO SAE: 15 DECEMBER 2010. DOSAGE FORM: LIQUID. TEMPORARILY INTERRUPTED
     Route: 042
     Dates: start: 20101117, end: 20101229
  9. GRAVOL TAB [Concomitant]
  10. ZOPICLONE [Concomitant]

REACTIONS (1)
  - BRAIN OEDEMA [None]
